FAERS Safety Report 10043729 (Version 1)
Quarter: 2014Q1

REPORT INFORMATION
  Report Type: Spontaneous
  Country: US (occurrence: US)
  Receive Date: 20140328
  Receipt Date: 20140328
  Transmission Date: 20141002
  Serious: No
  Sender: FDA-Public Use
  Company Number: US-009507513-1403USA004398

PATIENT
  Age: 85 Year
  Sex: Male

DRUGS (6)
  1. NASONEX [Suspect]
     Dosage: 2 DF, BID
     Route: 055
     Dates: start: 20140305
  2. CIPROXIN (CIPROFLOXACIN) [Concomitant]
  3. NAMENDA [Concomitant]
  4. DIOVAN [Concomitant]
  5. NORVASC [Concomitant]
  6. DONEPEZIL HYDROCHLORIDE [Concomitant]

REACTIONS (3)
  - Nasal congestion [Unknown]
  - Drug dose omission [Unknown]
  - Product quality issue [Unknown]
